FAERS Safety Report 8428304-6 (Version None)
Quarter: 2012Q2

REPORT INFORMATION
  Report Type: 
  Country: None (occurrence: None)
  Receive Date: 20120611
  Receipt Date: 20120608
  Transmission Date: 20120825
  Serious: Yes (Other)
  Sender: FDA-Public Use
  Company Number: CA-MERCK-1206USA01372

PATIENT
  Age: 64 Year
  Sex: Male
  Weight: 82 kg

DRUGS (7)
  1. SINEMET CR [Suspect]
     Route: 048
  2. HYDROMORPHONE [Concomitant]
     Route: 065
  3. SINEMET CR [Suspect]
     Route: 048
  4. CLONAZEPAM [Concomitant]
     Route: 048
  5. ZOPICLONE [Concomitant]
     Route: 048
  6. QUETIAPINE FUMARATE [Concomitant]
     Route: 048
  7. TESTOSTERONE [Concomitant]
     Route: 065

REACTIONS (4)
  - ABDOMINAL DISCOMFORT [None]
  - PRODUCT SUBSTITUTION ISSUE [None]
  - DRUG INEFFECTIVE [None]
  - TABLET PHYSICAL ISSUE [None]
